FAERS Safety Report 9838179 (Version 1)
Quarter: 2013Q4

REPORT INFORMATION
  Report Type: Spontaneous
  Country: US (occurrence: None)
  Receive Date: 20131205
  Receipt Date: 20131205
  Transmission Date: 20140711
  Serious: Yes (Hospitalization)
  Sender: FDA-Public Use
  Company Number: 163-POMAL-13092690

PATIENT
  Age: 49 Year
  Sex: Female
  Weight: 52.62 kg

DRUGS (10)
  1. POMALYST (POMALIDOMIDE) (4 MILLIGRAM, CAPSULES) [Suspect]
     Indication: PLASMA CELL MYELOMA
     Dosage: 4 MG, 21 IN 21 D, PO
     Route: 048
     Dates: start: 20130731, end: 201309
  2. CYMBALTA (DULOXETINE HYDROCHLORIDE) [Concomitant]
  3. AMLODIPINE BESYLATE (AMLODIPINE BESILATE) [Concomitant]
  4. HYDROMORPHONE (HYDROMORPHONE) [Concomitant]
  5. LYRICA (PREGABALIN) [Concomitant]
  6. HYDRALAZINE (HYDRALAZINE) [Concomitant]
  7. NEXIUM (ESOMEPRAZOLE) [Concomitant]
  8. ALLOPURINOL (ALLOPURINOL) [Concomitant]
  9. PRENAVITE (PRENAVITE) [Concomitant]
  10. STOOL SOFTENER (DOCUSATE SODIUM) [Concomitant]

REACTIONS (1)
  - Platelet count decreased [None]
